FAERS Safety Report 9110511 (Version 1)
Quarter: 2013Q1

REPORT INFORMATION
  Report Type: Spontaneous
  Country: US (occurrence: US)
  Receive Date: 20130222
  Receipt Date: 20130222
  Transmission Date: 20140127
  Serious: Yes (Other)
  Sender: FDA-Public Use
  Company Number: US-RB-05414-13

PATIENT
  Sex: Female

DRUGS (2)
  1. DELSYM COUGH RELIEF PLUS SOOTHING ACTION [Suspect]
     Indication: PRODUCT USED FOR UNKNOWN INDICATION
     Route: 048
  2. DELSYM COUGH RELIEF PLUS SOOTHING ACTION [Suspect]

REACTIONS (1)
  - Candida infection [Unknown]
